FAERS Safety Report 6035123-7 (Version None)
Quarter: 2009Q1

REPORT INFORMATION
  Report Type: 
  Country: None (occurrence: None)
  Receive Date: 20090112
  Receipt Date: 20090108
  Transmission Date: 20090719
  Serious: Yes (Hospitalization)
  Sender: FDA-Public Use
  Company Number: US-B.I. PHARMACEUTICALS,INC./RIDGEFIELD-2009-BP-00239BP

PATIENT
  Sex: Male

DRUGS (1)
  1. SPIRIVA [Suspect]

REACTIONS (5)
  - ASTHENIA [None]
  - COUGH [None]
  - DYSPNOEA [None]
  - LUNG INFECTION [None]
  - REFUSAL OF TREATMENT BY PATIENT [None]
